FAERS Safety Report 24709819 (Version 3)
Quarter: 2025Q1

REPORT INFORMATION
  Report Type: Report from Study
  Country: US (occurrence: US)
  Receive Date: 20241209
  Receipt Date: 20250209
  Transmission Date: 20250409
  Serious: Yes (Death, Hospitalization, Other)
  Sender: ABBVIE
  Company Number: US-ABBVIE-6035837

PATIENT
  Age: 76 Year
  Sex: Male
  Weight: 92.986 kg

DRUGS (22)
  1. SKYRIZI [Suspect]
     Active Substance: RISANKIZUMAB-RZAA
     Indication: Psoriasis
     Dosage: FORM STRENGTH: 150MG
     Route: 058
     Dates: start: 20231121
  2. PROZAC [Concomitant]
     Active Substance: FLUOXETINE HYDROCHLORIDE
     Indication: Irritability
  3. LYRICA [Concomitant]
     Active Substance: PREGABALIN
     Indication: Restless legs syndrome
  4. TAZAROTENE [Concomitant]
     Active Substance: TAZAROTENE
     Indication: Psoriasis
  5. REQUIP [Concomitant]
     Active Substance: ROPINIROLE HYDROCHLORIDE
     Indication: Restless legs syndrome
  6. VITAMIN C [Concomitant]
     Active Substance: ASCORBIC ACID
     Indication: Vitamin supplementation
  7. IRON [Concomitant]
     Active Substance: IRON
     Indication: Mineral supplementation
  8. JARDIANCE [Concomitant]
     Active Substance: EMPAGLIFLOZIN
     Indication: Diabetes mellitus
  9. FINASTERIDE [Concomitant]
     Active Substance: FINASTERIDE
     Indication: Bladder disorder
  10. SEROQUEL [Concomitant]
     Active Substance: QUETIAPINE FUMARATE
     Indication: Restless legs syndrome
  11. FLOMAX [Concomitant]
     Active Substance: TAMSULOSIN HYDROCHLORIDE
     Indication: Bladder disorder
  12. GEMTESA [Concomitant]
     Active Substance: VIBEGRON
     Indication: Bladder disorder
  13. ASPIRIN [Concomitant]
     Active Substance: ASPIRIN
     Indication: Heart valve replacement
  14. SPIRONOLACTONE [Concomitant]
     Active Substance: SPIRONOLACTONE
     Indication: Cardiac failure congestive
  15. METHADONE [Concomitant]
     Active Substance: METHADONE HYDROCHLORIDE
     Indication: Restless legs syndrome
  16. PROTONIX [Concomitant]
     Active Substance: PANTOPRAZOLE SODIUM
     Indication: Gastrointestinal disorder
  17. SOLIFENACIN [Concomitant]
     Active Substance: SOLIFENACIN
     Indication: Prostatomegaly
  18. BUMEX [Concomitant]
     Active Substance: BUMETANIDE
     Indication: Cardiac failure congestive
  19. CLOBETASOL [Concomitant]
     Active Substance: CLOBETASOL
     Indication: Psoriasis
  20. POTASSIUM CHLORIDE [Concomitant]
     Active Substance: POTASSIUM CHLORIDE
     Indication: Diuretic therapy
  21. LEVOTHYROXINE [Concomitant]
     Active Substance: LEVOTHYROXINE
     Indication: Thyroid disorder
  22. VITAMINS [Concomitant]
     Active Substance: VITAMINS
     Indication: Vitamin supplementation

REACTIONS (17)
  - Metabolic dysfunction-associated liver disease [Fatal]
  - Dementia [Not Recovered/Not Resolved]
  - Portal vein thrombosis [Fatal]
  - Loss of personal independence in daily activities [Unknown]
  - Hepatocellular carcinoma [Not Recovered/Not Resolved]
  - General physical health deterioration [Unknown]
  - Gastric varices [Not Recovered/Not Resolved]
  - Chronic hepatic failure [Not Recovered/Not Resolved]
  - Hepatic encephalopathy [Unknown]
  - Ammonia increased [Not Recovered/Not Resolved]
  - Portal hypertension [Fatal]
  - Hepatic cirrhosis [Fatal]
  - Septic shock [Not Recovered/Not Resolved]
  - Hepatic enzyme increased [Unknown]
  - Hepatic lesion [Not Recovered/Not Resolved]
  - Staphylococcal infection [Not Recovered/Not Resolved]
  - Unevaluable event [Unknown]

NARRATIVE: CASE EVENT DATE: 20231101
